FAERS Safety Report 8546706-4 (Version None)
Quarter: 2012Q3

REPORT INFORMATION
  Report Type: 
  Country: None (occurrence: None)
  Receive Date: 20120727
  Receipt Date: 20120130
  Transmission Date: 20120928
  Serious: No
  Sender: FDA-Public Use
  Company Number: US-ASTRAZENECA-2012SE06174

PATIENT
  Sex: Male

DRUGS (2)
  1. SEROQUEL [Suspect]
     Indication: BIPOLAR DISORDER
     Dosage: 20-30 MG AT BED TIME
     Route: 048
     Dates: end: 20100101
  2. SEROQUEL [Suspect]
     Route: 048

REACTIONS (5)
  - HANGOVER [None]
  - MUSCLE TIGHTNESS [None]
  - MUSCLE TWITCHING [None]
  - DRUG DOSE OMISSION [None]
  - CONTUSION [None]
